FAERS Safety Report 15405683 (Version 1)
Quarter: 2018Q3

REPORT INFORMATION
  Report Type: Spontaneous
  Country: IT (occurrence: IT)
  Receive Date: 20180920
  Receipt Date: 20180920
  Transmission Date: 20181010
  Serious: Yes (Other)
  Sender: FDA-Public Use
  Company Number: IT-BAXTER-2018BAX006249

PATIENT
  Age: 29 Year
  Sex: Male

DRUGS (6)
  1. METRONIDAZOLO BAXTER S.P.A. [Suspect]
     Active Substance: METRONIDAZOLE
     Indication: INFECTED SKIN ULCER
     Route: 042
     Dates: start: 20180209, end: 20180210
  2. DIAZEPAM. [Concomitant]
     Active Substance: DIAZEPAM
     Indication: MUSCLE SPASTICITY
     Route: 048
     Dates: start: 20180105, end: 20180213
  3. CLEXANE [Concomitant]
     Active Substance: ENOXAPARIN SODIUM
     Indication: THROMBOSIS PROPHYLAXIS
     Route: 058
     Dates: start: 20180106, end: 20180213
  4. TEICOPLANIN [Suspect]
     Active Substance: TEICOPLANIN
     Indication: INFECTED SKIN ULCER
     Route: 042
     Dates: start: 20180112, end: 20180209
  5. PIPERACILLIN/TAZOBACTAM [Suspect]
     Active Substance: PIPERACILLIN SODIUM\TAZOBACTAM SODIUM
     Indication: INFECTED SKIN ULCER
     Route: 042
     Dates: start: 20180117, end: 20180209
  6. PANTOPRAZOLE [Suspect]
     Active Substance: PANTOPRAZOLE
     Indication: DYSPEPSIA
     Route: 048
     Dates: start: 20180208, end: 20180210

REACTIONS (2)
  - Agranulocytosis [Recovered/Resolved]
  - Leukopenia [Recovered/Resolved]

NARRATIVE: CASE EVENT DATE: 20180210
